FAERS Safety Report 4685187-8 (Version None)
Quarter: 2005Q2

REPORT INFORMATION
  Report Type: 
  Country: None (occurrence: None)
  Receive Date: 20050603
  Receipt Date: 20050524
  Transmission Date: 20051028
  Serious: Yes (Other)
  Sender: FDA-Public Use
  Company Number: 2005055610

PATIENT
  Age: 46 Year
  Sex: Female
  Weight: 78 kg

DRUGS (5)
  1. GABAPENTIN [Suspect]
     Indication: NEUROPATHIC PAIN
     Dosage: 900 MG (1D), ORAL
     Route: 048
     Dates: start: 20050120
  2. VALPROIC ACID [Concomitant]
  3. VENLAFAXINE HCL [Concomitant]
  4. OMEPRAZOLE [Concomitant]
  5. OLANZAPINE [Concomitant]

REACTIONS (2)
  - DRUG INEFFECTIVE [None]
  - EPILEPSY [None]
